FAERS Safety Report 5897641-1 (Version None)
Quarter: 2008Q3

REPORT INFORMATION
  Report Type: 
  Country: None (occurrence: None)
  Receive Date: 20080925
  Receipt Date: 20080916
  Transmission Date: 20090109
  Serious: Yes (Death, Hospitalization)
  Sender: FDA-Public Use
  Company Number: US-ROCHE-586727

PATIENT
  Age: 84 Year
  Sex: Male
  Weight: 90.9 kg

DRUGS (1)
  1. CAPECITABINE [Suspect]
     Route: 065
     Dates: start: 20080717, end: 20080825

REACTIONS (4)
  - NAUSEA [None]
  - SUDDEN DEATH [None]
  - SYNCOPE [None]
  - VOMITING [None]
